FAERS Safety Report 25399607 (Version 2)
Quarter: 2025Q3

REPORT INFORMATION
  Report Type: Spontaneous
  Country: EU (occurrence: None)
  Receive Date: 20250605
  Receipt Date: 20250701
  Transmission Date: 20251021
  Serious: Yes (Other)
  Sender: MEDUNIK USA
  Company Number: None

PATIENT
  Sex: Female

DRUGS (1)
  1. SIKLOS [Suspect]
     Active Substance: HYDROXYUREA
     Indication: Myeloproliferative neoplasm
     Dates: start: 202412, end: 202504

REACTIONS (13)
  - Depression [Unknown]
  - Suicidal ideation [Unknown]
  - Muscular weakness [Unknown]
  - Muscle twitching [Unknown]
  - Asthenia [Unknown]
  - Fatigue [Unknown]
  - Pallor [Unknown]
  - Brain fog [Unknown]
  - Cognitive disorder [Unknown]
  - Speech disorder [Unknown]
  - Dysgraphia [Unknown]
  - Memory impairment [Unknown]
  - Memory impairment [Unknown]
